FAERS Safety Report 19534384 (Version 1)
Quarter: 2021Q3

REPORT INFORMATION
  Report Type: Spontaneous
  Country: BR (occurrence: BR)
  Receive Date: 20210714
  Receipt Date: 20210714
  Transmission Date: 20211014
  Serious: Yes (Hospitalization, Other)
  Sender: FDA-Public Use
  Company Number: BR-AUROBINDO-09-AUR-09714

PATIENT
  Age: 2 Year
  Sex: Female

DRUGS (5)
  1. OXACILLIN [Suspect]
     Active Substance: OXACILLIN SODIUM
     Indication: PRODUCT USED FOR UNKNOWN INDICATION
     Dosage: 200 MILLIGRAM/KILOGRAM
     Route: 065
  2. CEFTRIAXONE. [Suspect]
     Active Substance: CEFTRIAXONE
     Indication: PRODUCT USED FOR UNKNOWN INDICATION
     Dosage: 100 MILLIGRAM/KILOGRAM
     Route: 065
  3. AMOXICILLIN CAPSULES USP 500 MG [Suspect]
     Active Substance: AMOXICILLIN
     Indication: PNEUMONIA
     Dosage: UNK UNK,UNK,
     Route: 065
  4. CYCLOPHOSPHAMIDE. [Concomitant]
     Active Substance: CYCLOPHOSPHAMIDE
     Indication: VASCULITIS
     Dosage: 500 MILLIGRAM/SQ. METER
     Route: 065
  5. METHYLPREDNISOLONE. [Concomitant]
     Active Substance: METHYLPREDNISOLONE
     Indication: VASCULITIS
     Dosage: 30 MILLIGRAM/KILOGRAM
     Route: 042

REACTIONS (12)
  - Myocarditis [Recovered/Resolved]
  - Necrosis [Recovered/Resolved]
  - Pancytopenia [Recovered/Resolved]
  - Inflammation [Recovered/Resolved]
  - Oedema peripheral [Recovered/Resolved]
  - Chest X-ray abnormal [Recovered/Resolved]
  - Cardiac murmur [Recovered/Resolved]
  - Drug reaction with eosinophilia and systemic symptoms [Recovered/Resolved]
  - Transaminases increased [Recovered/Resolved]
  - Pyrexia [Recovered/Resolved]
  - Lymphocyte morphology abnormal [Recovered/Resolved]
  - Hepatomegaly [Recovered/Resolved]
